FAERS Safety Report 19316536 (Version 1)
Quarter: 2021Q2

REPORT INFORMATION
  Report Type: Report from Study
  Country: PL (occurrence: PL)
  Receive Date: 20210527
  Receipt Date: 20210527
  Transmission Date: 20210717
  Serious: Yes (Death, Hospitalization)
  Sender: FDA-Public Use
  Company Number: PL-JNJFOC-A-NJ2020-204947

PATIENT
  Age: 67 Year
  Sex: Male

DRUGS (1)
  1. VENTAVIS [Suspect]
     Active Substance: ILOPROST
     Indication: PULMONARY ARTERIAL HYPERTENSION
     Dosage: 2.5 MCG, 6 TIMES/DAY
     Route: 055
     Dates: start: 20200131, end: 20200429

REACTIONS (12)
  - Pulmonary fibrosis [Fatal]
  - Product dose omission issue [Unknown]
  - General physical health deterioration [Recovered/Resolved]
  - Peripheral swelling [Recovered/Resolved]
  - Drug delivery system malfunction [Unknown]
  - Respiratory failure [Fatal]
  - Chronic obstructive pulmonary disease [Fatal]
  - Dyspnoea exertional [Recovered/Resolved]
  - Pulmonary hypertension [Fatal]
  - Exercise tolerance decreased [Recovered/Resolved]
  - Productive cough [Recovered/Resolved]
  - Device use error [Unknown]

NARRATIVE: CASE EVENT DATE: 20200209
